FAERS Safety Report 5225018-0 (Version None)
Quarter: 2007Q1

REPORT INFORMATION
  Report Type: 
  Country: None (occurrence: None)
  Receive Date: 20070126
  Receipt Date: 20070117
  Transmission Date: 20070707
  Serious: Yes (Hospitalization)
  Sender: FDA-Public Use
  Company Number: TCI2006A05899

PATIENT
  Age: 61 Year
  Sex: Male

DRUGS (6)
  1. ACTOS [Suspect]
     Indication: DIABETES MELLITUS NON-INSULIN-DEPENDENT
     Dosage: 15 MG (15 MG, 1 IN 1 D) PER ORAL
     Route: 048
     Dates: start: 20001001, end: 20050627
  2. BEZATOL SR (BEZAFIBRATE) [Suspect]
     Indication: DRUG USE FOR UNKNOWN INDICATION
     Dosage: 400 MG (200 MG, 2 IN 1 D) PER ORAL
     Route: 048
     Dates: start: 20001001, end: 20050627
  3. BLOPRESS TABLETS 8 (CANDESARTAN CILEXETIL) [Concomitant]
  4. ASPIRIN [Concomitant]
  5. LASIX [Concomitant]
  6. ADALAT [Concomitant]

REACTIONS (9)
  - ABDOMINAL DISTENSION [None]
  - BLOOD CREATINE INCREASED [None]
  - BLOOD UREA INCREASED [None]
  - DECREASED APPETITE [None]
  - DIARRHOEA [None]
  - HAEMOGLOBIN DECREASED [None]
  - HIGH DENSITY LIPOPROTEIN DECREASED [None]
  - HYPOCHOLESTEROLAEMIA [None]
  - MALAISE [None]
